FAERS Safety Report 10920884 (Version 2)
Quarter: 2015Q2

REPORT INFORMATION
  Report Type: Spontaneous
  Country: US (occurrence: US)
  Receive Date: 20150317
  Receipt Date: 20150519
  Transmission Date: 20150821
  Serious: No
  Sender: FDA-Public Use
  Company Number: US-PFIZER INC-2015083533

PATIENT
  Age: 51 Year
  Sex: Male
  Weight: 101.6 kg

DRUGS (5)
  1. METFORMIN [Concomitant]
     Active Substance: METFORMIN HYDROCHLORIDE
     Dosage: UNK
  2. REMERON [Concomitant]
     Active Substance: MIRTAZAPINE
  3. PHENERGAN [Concomitant]
     Active Substance: PROMETHAZINE HYDROCHLORIDE
     Dosage: UNK, AS NEEDED
  4. SUTENT [Suspect]
     Active Substance: SUNITINIB MALATE
     Indication: METASTATIC RENAL CELL CARCINOMA
     Dosage: 50 MG, CYCLIC (28 DAYS ON, 14 DAYS OFF)
     Dates: start: 20140301
  5. KLONOPIN [Concomitant]
     Active Substance: CLONAZEPAM
     Dosage: UNK

REACTIONS (8)
  - Nausea [Recovered/Resolved]
  - Fatigue [Unknown]
  - Rash [Recovered/Resolved]
  - Disease progression [Recovering/Resolving]
  - Dysgeusia [Unknown]
  - Decreased appetite [Unknown]
  - Metastatic renal cell carcinoma [Unknown]
  - Weight decreased [Unknown]
